FAERS Safety Report 14547536 (Version 2)
Quarter: 2018Q1

REPORT INFORMATION
  Report Type: Spontaneous
  Country: US (occurrence: US)
  Receive Date: 20180219
  Receipt Date: 20180222
  Transmission Date: 20180509
  Serious: Yes (Other)
  Sender: FDA-Public Use
  Company Number: US-TEVA-2018-US-859333

PATIENT
  Age: 74 Year
  Sex: Female
  Weight: 72.64 kg

DRUGS (1)
  1. QVAR [Suspect]
     Active Substance: BECLOMETHASONE DIPROPIONATE
     Indication: ASTHMA
     Dosage: 80 MICROG/1
     Route: 065
     Dates: start: 2004

REACTIONS (29)
  - Walking aid user [Unknown]
  - Muscle strain [Unknown]
  - Stomatitis [Not Recovered/Not Resolved]
  - Asthma [Unknown]
  - Insomnia [Not Recovered/Not Resolved]
  - Cough [Unknown]
  - Feeling abnormal [Unknown]
  - Therapeutic response shortened [Unknown]
  - Sleep disorder [Unknown]
  - Bronchospasm [Unknown]
  - Condition aggravated [Unknown]
  - Urticaria [Unknown]
  - Nausea [Not Recovered/Not Resolved]
  - Hunger [Not Recovered/Not Resolved]
  - Hypoaesthesia [Not Recovered/Not Resolved]
  - Gait disturbance [Unknown]
  - Constipation [Not Recovered/Not Resolved]
  - Throat irritation [Unknown]
  - Productive cough [Unknown]
  - Weight decreased [Unknown]
  - Dyspnoea [Unknown]
  - Diabetes mellitus [Not Recovered/Not Resolved]
  - Malaise [Unknown]
  - Pain [Unknown]
  - Weight increased [Recovered/Resolved]
  - Breath odour [Recovered/Resolved]
  - Narrow anterior chamber angle [Not Recovered/Not Resolved]
  - Wheezing [Unknown]
  - Muscle spasms [Unknown]

NARRATIVE: CASE EVENT DATE: 201712
